FAERS Safety Report 23040804 (Version 1)
Quarter: 2023Q4

REPORT INFORMATION
  Report Type: Report from Study
  Country: CA (occurrence: CA)
  Receive Date: 20231006
  Receipt Date: 20231006
  Transmission Date: 20240110
  Serious: Yes (Death, Hospitalization, Other)
  Sender: FDA-Public Use
  Company Number: CA-ALXN-A202311992AA

PATIENT
  Age: 73 Year
  Sex: Male
  Weight: 89.81 kg

DRUGS (19)
  1. SOLIRIS [Suspect]
     Active Substance: ECULIZUMAB
     Dosage: 900 MG, Q2W
     Route: 042
     Dates: start: 20120607
  2. SOLIRIS [Suspect]
     Active Substance: ECULIZUMAB
     Indication: Paroxysmal nocturnal haemoglobinuria
     Dosage: 600 MG, QW
     Route: 042
     Dates: start: 20120510, end: 20120531
  3. ACETAMINOPHEN [Concomitant]
     Active Substance: ACETAMINOPHEN
     Indication: Headache
     Dosage: 20 MG, UNK
     Route: 048
     Dates: start: 2012
  4. ALPHAGAN P [Concomitant]
     Active Substance: BRIMONIDINE TARTRATE
     Indication: Cataract
     Dosage: 0.2 %, UNK
     Route: 061
     Dates: start: 2008
  5. AMLODIPINE [Concomitant]
     Active Substance: AMLODIPINE BESYLATE
     Indication: Hypertension
     Dosage: 10 MG, UNK
     Route: 048
     Dates: start: 2006
  6. ATACAND [Concomitant]
     Active Substance: CANDESARTAN CILEXETIL
     Indication: Hypertension
     Dosage: 25-32 MG , UNK
     Route: 048
     Dates: start: 2006
  7. AZOPT [Concomitant]
     Active Substance: BRINZOLAMIDE
     Indication: Cataract
     Dosage: 1 %, UNK
     Route: 061
     Dates: start: 2008
  8. CANDESARTAN [Concomitant]
     Active Substance: CANDESARTAN
     Indication: Hypertension
     Dosage: 8 MG, UNK
     Route: 048
     Dates: start: 202001
  9. ASPIRIN [Concomitant]
     Active Substance: ASPIRIN
     Indication: Hypertension
     Dosage: 80 MG, UNK
     Route: 048
     Dates: start: 2006
  10. EPREX [Concomitant]
     Active Substance: ERYTHROPOIETIN
     Indication: Haemoglobin
     Dosage: 40000 U/ML,QW
     Route: 058
     Dates: start: 20200824
  11. FLOMAX [Concomitant]
     Active Substance: TAMSULOSIN HYDROCHLORIDE
     Indication: Prostate cancer
     Dosage: 0.4 MG, UNK
     Route: 048
     Dates: start: 2011
  12. FOLIC ACID [Concomitant]
     Active Substance: FOLIC ACID
     Indication: Anaemia
     Dosage: 2.5 MG, UNK
     Route: 048
     Dates: start: 2006
  13. GLUCONORM                          /00082702/ [Concomitant]
     Indication: Diabetes mellitus
     Dosage: 4 MG,UNK
     Route: 048
     Dates: start: 2006
  14. METFORMIN [Concomitant]
     Active Substance: METFORMIN HYDROCHLORIDE
     Indication: Diabetes mellitus
     Dosage: 250 MG, UNK
     Route: 048
     Dates: start: 201607
  15. NAPROXEN [Concomitant]
     Active Substance: NAPROXEN
     Indication: Prophylaxis
     Dosage: 20 MG, UNK
     Route: 048
     Dates: start: 2011
  16. NOVOLIN NOS [Concomitant]
     Active Substance: INSULIN HUMAN
     Indication: Diabetes mellitus
     Dosage: 50/50, UNK, UNK
     Route: 058
     Dates: start: 2007
  17. OMEPRAZOLE [Concomitant]
     Active Substance: OMEPRAZOLE
     Indication: Abdominal discomfort
     Dosage: 20 MG, UNK
     Route: 048
     Dates: start: 2006
  18. PREDNISOLONE [Concomitant]
     Active Substance: PREDNISOLONE
     Indication: Cataract
     Dosage: 1 %, UNK
     Route: 061
     Dates: start: 2010
  19. VITAMIN B12 [Concomitant]
     Active Substance: CYANOCOBALAMIN
     Indication: Anaemia
     Dosage: 1000 ?G, UNK
     Route: 048
     Dates: start: 2006

REACTIONS (2)
  - Death [Fatal]
  - Palliative care [Not Recovered/Not Resolved]

NARRATIVE: CASE EVENT DATE: 20230901
